FAERS Safety Report 18233742 (Version 2)
Quarter: 2020Q3

REPORT INFORMATION
  Report Type: Report from Study
  Country: None (occurrence: CA)
  Receive Date: 20200904
  Receipt Date: 20200930
  Transmission Date: 20201103
  Serious: Yes (Hospitalization, Other)
  Sender: FDA-Public Use
  Company Number: CA-ABBVIE-18P-028-2437114-00

PATIENT
  Age: 65 Year
  Sex: Male
  Weight: 96 kg

DRUGS (9)
  1. ZOCOR [Concomitant]
     Active Substance: SIMVASTATIN
     Indication: HYPERLIPIDAEMIA
     Route: 048
     Dates: start: 20141115, end: 2018
  2. GLUCOPHAGE [Concomitant]
     Active Substance: METFORMIN HYDROCHLORIDE
     Indication: TYPE 2 DIABETES MELLITUS
     Route: 048
     Dates: start: 20171010, end: 20180809
  3. HUMIRA [Suspect]
     Active Substance: ADALIMUMAB
     Indication: COLITIS ULCERATIVE
     Route: 058
     Dates: start: 20160528, end: 20180418
  4. MESASAL [Concomitant]
     Indication: COLITIS ULCERATIVE
     Route: 048
     Dates: start: 1994, end: 20161201
  5. MESASAL [Concomitant]
     Route: 048
     Dates: start: 20161202, end: 20180809
  6. HUMIRA [Suspect]
     Active Substance: ADALIMUMAB
     Route: 058
     Dates: start: 20180502, end: 20190827
  7. CIPRALEX [Concomitant]
     Active Substance: ESCITALOPRAM OXALATE
     Indication: DEPRESSION
     Route: 048
     Dates: start: 20151202
  8. OLMETEC PLUS [Concomitant]
     Active Substance: HYDROCHLOROTHIAZIDE\OLMESARTAN MEDOXOMIL
     Indication: HYPERTENSION
     Dosage: DOSE: 40?12.5 MG (MILLIGRAM(S))
     Route: 048
     Dates: start: 20160427
  9. ECTOSONE [Concomitant]
     Indication: ECZEMA
     Dosage: RATIO?ECTOSONE
     Route: 061
     Dates: start: 20160519

REACTIONS (1)
  - Pseudopolyposis [Recovered/Resolved]

NARRATIVE: CASE EVENT DATE: 20180418
